FAERS Safety Report 24276726 (Version 1)
Quarter: 2024Q3

REPORT INFORMATION
  Report Type: Spontaneous
  Country: US (occurrence: US)
  Receive Date: 20240903
  Receipt Date: 20240903
  Transmission Date: 20241016
  Serious: No
  Sender: BAYER
  Company Number: US-BAYER-2024A123135

PATIENT
  Age: 72 Year
  Sex: Female

DRUGS (1)
  1. CLARITIN LIQUI-GELS [Suspect]
     Active Substance: LORATADINE
     Indication: Bone pain
     Dosage: 1 DF
     Route: 048
     Dates: start: 20240826, end: 20240826

REACTIONS (1)
  - Product prescribing issue [Unknown]
